FAERS Safety Report 23975836 (Version 1)
Quarter: 2024Q2

REPORT INFORMATION
  Report Type: Spontaneous
  Country: US (occurrence: US)
  Receive Date: 20240614
  Receipt Date: 20240614
  Transmission Date: 20240716
  Serious: No
  Sender: FDA-Public Use
  Company Number: US-ALVOGEN-2024094320

PATIENT
  Sex: Male

DRUGS (2)
  1. LOREEV XR [Suspect]
     Active Substance: LORAZEPAM
     Indication: Anxiety
     Dosage: EXPIRATION DATE: 24-SEP-2024?EXTENDED RELEASE
     Dates: start: 20240330
  2. DIVALPROEX SODIUM [Concomitant]
     Active Substance: DIVALPROEX SODIUM
     Indication: Product used for unknown indication

REACTIONS (1)
  - Drug ineffective [Unknown]
